FAERS Safety Report 5143392-0 (Version None)
Quarter: 2006Q4

REPORT INFORMATION
  Report Type: 
  Country: None (occurrence: None)
  Receive Date: 20061030
  Receipt Date: 20061027
  Transmission Date: 20070319
  Serious: Yes (Death, Life-Threatening, Hospitalization)
  Sender: FDA-Public Use
  Company Number: HQWYE628004APR06

PATIENT
  Age: 73 Year
  Sex: Male

DRUGS (8)
  1. TIGECYCLINE (TIGECYCLINE,  INJECTION) [Suspect]
     Indication: PNEUMONIA
     Dosage: 100MG LOADING DOSE THEN 50 MG EVERY 12 HOURS INTRAVENOUS
     Route: 042
     Dates: start: 20060309, end: 20060317
  2. UMULINE (INSULIN HUMAN ZINC SUSPENSION) [Concomitant]
  3. HEPARINE 9HEPARIN) [Concomitant]
  4. TERCIAN (CYAMEMAZINE) [Concomitant]
  5. FENTANYL [Concomitant]
  6. DIAMOX #1 (ACETAZOLAMIDE) [Concomitant]
  7. ALDACTONE [Concomitant]
  8. DUPHALAC [Concomitant]

REACTIONS (1)
  - IDIOPATHIC PULMONARY FIBROSIS [None]
